FAERS Safety Report 10094207 (Version 1)
Quarter: 2014Q2

REPORT INFORMATION
  Report Type: Spontaneous
  Country: US (occurrence: None)
  Receive Date: 20140421
  Receipt Date: 20140421
  Transmission Date: 20141212
  Serious: Yes (Hospitalization, Disabling, Other)
  Sender: FDA-Public Use
  Company Number: None

PATIENT
  Age: 53 Year
  Sex: Female
  Weight: 63.5 kg

DRUGS (1)
  1. FLUTICASONE 50 MCG [Suspect]
     Indication: MULTIPLE ALLERGIES
     Route: 045
     Dates: start: 20110408

REACTIONS (2)
  - Cataract [None]
  - Blindness [None]
